FAERS Safety Report 16253353 (Version 1)
Quarter: 2019Q2

REPORT INFORMATION
  Report Type: Spontaneous
  Country: FR (occurrence: FR)
  Receive Date: 20190429
  Receipt Date: 20190429
  Transmission Date: 20190711
  Serious: Yes (Life-Threatening)
  Sender: FDA-Public Use
  Company Number: FR-ZYDUS-036089

PATIENT
  Age: 72 Year
  Sex: Female
  Weight: 86 kg

DRUGS (9)
  1. NADOLOL. [Suspect]
     Active Substance: NADOLOL
     Indication: HYPERTENSION
     Dosage: 80 MG, SCORED TABLET
     Route: 048
     Dates: end: 20190321
  2. ROSUVASTATIN. [Suspect]
     Active Substance: ROSUVASTATIN
     Indication: HYPERCHOLESTEROLAEMIA
     Dosage: ()
     Route: 048
     Dates: end: 20190321
  3. METFORMIN [Suspect]
     Active Substance: METFORMIN HYDROCHLORIDE
     Indication: TYPE 2 DIABETES MELLITUS
     Route: 048
     Dates: end: 20190321
  4. AMILORIDE HYDROCHLORIDE/HYDROCHLOROTHIAZIDE [Suspect]
     Active Substance: AMILORIDE HYDROCHLORIDE\HYDROCHLOROTHIAZIDE
     Indication: HYPERTENSION
     Dosage: ()
     Route: 048
     Dates: end: 20190321
  5. GLIMEPIRIDE. [Suspect]
     Active Substance: GLIMEPIRIDE
     Indication: TYPE 2 DIABETES MELLITUS
     Dosage: 3 MG TABLET
     Route: 048
     Dates: end: 20190321
  6. LEVOTHYROXINE. [Suspect]
     Active Substance: LEVOTHYROXINE
     Indication: HYPOTHYROIDISM
     Route: 048
     Dates: end: 20190321
  7. ALLOPURINOL. [Suspect]
     Active Substance: ALLOPURINOL
     Indication: GOUT
     Route: 048
     Dates: end: 20190321
  8. ACARBOSE. [Suspect]
     Active Substance: ACARBOSE
     Indication: TYPE 2 DIABETES MELLITUS
     Route: 048
     Dates: end: 20190321
  9. ACETYLSALICYLIC ACID [Suspect]
     Active Substance: ASPIRIN
     Indication: PROPHYLAXIS
     Dosage: 75 MG POWDER FOR ORAL SOLUTION IN A SACHET
     Route: 048
     Dates: end: 20190321

REACTIONS (5)
  - Hyperkalaemia [Recovered/Resolved]
  - Hypoglycaemia [Recovered/Resolved]
  - Diarrhoea [Recovered/Resolved]
  - Acute kidney injury [Recovering/Resolving]
  - Lactic acidosis [Recovering/Resolving]

NARRATIVE: CASE EVENT DATE: 20190317
